FAERS Safety Report 6120782-0 (Version None)
Quarter: 2009Q1

REPORT INFORMATION
  Report Type: 
  Country: None (occurrence: None)
  Receive Date: 20090313
  Receipt Date: 20090114
  Transmission Date: 20090719
  Serious: Yes (Hospitalization)
  Sender: FDA-Public Use
  Company Number: 2008-0019361

PATIENT
  Age: 68 Year
  Sex: Male

DRUGS (2)
  1. ATRIPLA [Suspect]
     Indication: HIV INFECTION
     Dosage: 1 IN 1 D, ORAL
     Route: 048
     Dates: start: 20071201, end: 20080501
  2. TRIZIVIR (ABACAVIR SULFATE W / LAMIVUDINE) [Concomitant]

REACTIONS (3)
  - CONFUSIONAL STATE [None]
  - DELUSION [None]
  - PARANOIA [None]
